FAERS Safety Report 9632266 (Version 1)
Quarter: 2013Q4

REPORT INFORMATION
  Report Type: Spontaneous
  Country: US (occurrence: US)
  Receive Date: 20131018
  Receipt Date: 20131018
  Transmission Date: 20140711
  Serious: Yes (Other)
  Sender: FDA-Public Use
  Company Number: US-PFIZER INC-2013295871

PATIENT
  Sex: Female
  Weight: 49.89 kg

DRUGS (7)
  1. TOVIAZ [Suspect]
     Indication: HYPERTONIC BLADDER
     Dosage: UNK
     Route: 048
  2. SIMVASTATIN [Concomitant]
     Dosage: UNK
  3. CALCITONIN, SALMON [Concomitant]
     Dosage: UNK
     Route: 045
  4. EVISTA [Concomitant]
     Dosage: UNK
  5. NASONEX [Concomitant]
     Dosage: UNK
  6. CALCIUM CITRATE [Concomitant]
     Indication: MINERAL SUPPLEMENTATION
     Dosage: UNK
  7. VITAMIN D3 [Concomitant]
     Dosage: UNK

REACTIONS (2)
  - Throat tightness [Unknown]
  - Vitamin D increased [Unknown]
